FAERS Safety Report 12489548 (Version 1)
Quarter: 2016Q2

REPORT INFORMATION
  Report Type: Spontaneous
  Country: DK (occurrence: DK)
  Receive Date: 20160622
  Receipt Date: 20160622
  Transmission Date: 20160815
  Serious: Yes (Life-Threatening, Hospitalization)
  Sender: FDA-Public Use
  Company Number: PHHY2016DK082329

PATIENT
  Age: 81 Year
  Sex: Female

DRUGS (16)
  1. FOLIMET [Concomitant]
     Indication: SUPPLEMENTATION THERAPY
     Route: 048
  2. MICARDISPLUS [Concomitant]
     Active Substance: HYDROCHLOROTHIAZIDE\TELMISARTAN
     Indication: HYPERTENSION
     Dosage: STYRKE: 80 + 12,5 MG.
     Route: 048
  3. ALLOPURINOL. [Concomitant]
     Active Substance: ALLOPURINOL
     Indication: GOUT
     Route: 048
  4. TRADOLAN [Concomitant]
     Active Substance: TRAMADOL
     Indication: PAIN
     Route: 065
  5. PRADAXA [Concomitant]
     Active Substance: DABIGATRAN ETEXILATE MESYLATE
     Indication: THROMBOSIS PROPHYLAXIS
     Route: 048
  6. SIMVASTAN [Concomitant]
     Indication: HYPERCHOLESTEROLAEMIA
     Route: 048
  7. FURIX [Concomitant]
     Active Substance: FUROSEMIDE
     Indication: DIURETIC THERAPY
     Route: 065
  8. PINEX//PARACETAMOL [Concomitant]
     Indication: PAIN
     Route: 065
  9. PANTOPRAZOLE [Concomitant]
     Active Substance: PANTOPRAZOLE SODIUM
     Indication: PROPHYLAXIS AGAINST GASTROINTESTINAL ULCER
     Route: 065
  10. PREDNISOLONE ^DAK^ [Suspect]
     Active Substance: PREDNISOLONE
     Indication: RHEUMATOID ARTHRITIS
     Dosage: STYRKE: 5 MG
     Route: 048
     Dates: end: 20160609
  11. TERBINAFINE HYDROCHLORIDE. [Concomitant]
     Active Substance: TERBINAFINE HYDROCHLORIDE
     Indication: FUNGAL SKIN INFECTION
     Dosage: STYRKE: 10 MG/G.
     Route: 003
  12. KALEORID [Concomitant]
     Active Substance: POTASSIUM CHLORIDE
     Indication: MINERAL SUPPLEMENTATION
     Dosage: STYRKE: 750 MG.
     Route: 048
  13. METHOTREXATE (METHOTREXATE SODIUM) [Suspect]
     Active Substance: METHOTREXATE SODIUM
     Indication: RHEUMATOID ARTHRITIS
     Dosage: 12.5 MG, QW
     Route: 048
     Dates: end: 20160609
  14. INNOHEP [Concomitant]
     Active Substance: TINZAPARIN SODIUM
     Indication: THROMBOSIS PROPHYLAXIS
     Route: 058
  15. MEDILAX [Concomitant]
     Indication: CONSTIPATION
     Dosage: STYRKE: 667 MG/ML.
     Route: 048
  16. THIAMAZOL [Concomitant]
     Active Substance: METHIMAZOLE
     Indication: PRODUCT USED FOR UNKNOWN INDICATION
     Route: 048

REACTIONS (8)
  - Wound infection [Not Recovered/Not Resolved]
  - Pleural effusion [Unknown]
  - Pneumothorax [Not Recovered/Not Resolved]
  - Infection [Not Recovered/Not Resolved]
  - Decreased immune responsiveness [Recovering/Resolving]
  - Thoracic cavity drainage [Unknown]
  - Impaired healing [Unknown]
  - Addison^s disease [Recovering/Resolving]

NARRATIVE: CASE EVENT DATE: 20160218
